FAERS Safety Report 4887317-1 (Version None)
Quarter: 2005Q4

REPORT INFORMATION
  Report Type: 
  Country: None (occurrence: None)
  Receive Date: 20051220
  Receipt Date: 20050503
  Transmission Date: 20060501
  Serious: Yes (Other)
  Sender: FDA-Public Use
  Company Number: HQWYE562805MAY05

PATIENT
  Age: 42 Year
  Sex: Female
  Weight: 158.9 kg

DRUGS (9)
  1. EFFEXOR XR [Suspect]
     Dosage: 225 MG 1 X PER 1 DAY, ORAL
     Route: 048
     Dates: start: 20040501, end: 20050403
  2. EFFEXOR XR [Suspect]
     Dosage: 225 MG 1 X PER 1 DAY, ORAL
     Route: 048
     Dates: start: 20050101
  3. GLYBURIDE [Concomitant]
  4. AVANDIA [Concomitant]
  5. METFORMIN HCL [Concomitant]
  6. LIPITOR [Concomitant]
  7. VASOTEC [Concomitant]
  8. ZYRTEC [Concomitant]
  9. FLOVENT [Concomitant]

REACTIONS (3)
  - CRYING [None]
  - DRUG WITHDRAWAL SYNDROME [None]
  - FATIGUE [None]
